FAERS Safety Report 9132939 (Version 1)
Quarter: 2013Q1

REPORT INFORMATION
  Report Type: Spontaneous
  Country: FR (occurrence: FR)
  Receive Date: 20130301
  Receipt Date: 20130301
  Transmission Date: 20140127
  Serious: Yes (Hospitalization, Other)
  Sender: FDA-Public Use
  Company Number: FR-ELI_LILLY_AND_COMPANY-FR201211007408

PATIENT
  Age: 56 Year
  Sex: Female

DRUGS (1)
  1. GEMZAR [Suspect]
     Indication: BLADDER CANCER
     Dosage: 1650 MG, UNK
     Route: 042
     Dates: start: 20120723, end: 20121030

REACTIONS (2)
  - Dermo-hypodermitis [Recovered/Resolved]
  - Anaemia [Unknown]
